FAERS Safety Report 23864938 (Version 2)
Quarter: 2024Q2

REPORT INFORMATION
  Report Type: Report from Study
  Country: US (occurrence: US)
  Receive Date: 20240516
  Receipt Date: 20240520
  Transmission Date: 20240716
  Serious: Yes (Other)
  Sender: FDA-Public Use
  Company Number: US-002147023-NVSC2024US085253

PATIENT
  Age: 74 Year
  Sex: Female
  Weight: 81 kg

DRUGS (3)
  1. FABHALTA [Suspect]
     Active Substance: IPTACOPAN HYDROCHLORIDE
     Indication: Paroxysmal nocturnal haemoglobinuria
     Dosage: 200 MG, BID
     Route: 048
     Dates: start: 20240412
  2. FABHALTA [Suspect]
     Active Substance: IPTACOPAN HYDROCHLORIDE
     Dosage: 200 MG, BID
     Route: 048
  3. AVATROMBOPAG [Suspect]
     Active Substance: AVATROMBOPAG
     Indication: Paroxysmal nocturnal haemoglobinuria
     Dosage: 20 MG, QD
     Route: 047
     Dates: start: 20240419

REACTIONS (8)
  - Thrombosis [Unknown]
  - Platelet count abnormal [Unknown]
  - Contusion [Unknown]
  - Gingival swelling [Unknown]
  - Nausea [Unknown]
  - Weight decreased [Unknown]
  - Fatigue [Unknown]
  - Asthenia [Unknown]

NARRATIVE: CASE EVENT DATE: 20240501
